FAERS Safety Report 18749534 (Version 1)
Quarter: 2021Q1

REPORT INFORMATION
  Report Type: Report from Study
  Country: CR (occurrence: CR)
  Receive Date: 20210116
  Receipt Date: 20210116
  Transmission Date: 20210419
  Serious: Yes (Other)
  Sender: FDA-Public Use
  Company Number: NVSC2021CR007176

PATIENT
  Sex: Female

DRUGS (1)
  1. EXFORGE HCT [Suspect]
     Active Substance: AMLODIPINE BESYLATE\HYDROCHLOROTHIAZIDE\VALSARTAN
     Indication: PRODUCT USED FOR UNKNOWN INDICATION
     Dosage: 1 DF (5/12.5/160 MG) (3 YEARS APPROXIMATELY)
     Route: 065
     Dates: start: 2017

REACTIONS (3)
  - Dysgraphia [Unknown]
  - Upper limb fracture [Unknown]
  - Fall [Unknown]
